FAERS Safety Report 9767460 (Version 1)
Quarter: 2013Q4

REPORT INFORMATION
  Report Type: Spontaneous
  Country: IN (occurrence: IN)
  Receive Date: 20131217
  Receipt Date: 20131217
  Transmission Date: 20140711
  Serious: Yes (Other)
  Sender: FDA-Public Use
  Company Number: IN-DRREDDYS-USA/IND/13/0036337

PATIENT
  Age: 24 Year
  Sex: Female

DRUGS (7)
  1. METFORMIN [Suspect]
     Indication: GLUCOSE TOLERANCE IMPAIRED
     Route: 065
  2. PREDNISOLONE [Suspect]
     Indication: AMENORRHOEA
     Route: 065
  3. PREDNISOLONE [Suspect]
     Route: 065
  4. PREDNISOLONE [Suspect]
     Route: 065
  5. PREDNISOLONE [Suspect]
     Route: 065
  6. FOLIC ACID [Concomitant]
     Indication: SUPPLEMENTATION THERAPY
     Route: 065
  7. CALCIUM [Concomitant]
     Indication: SUPPLEMENTATION THERAPY
     Route: 065

REACTIONS (4)
  - Abortion threatened [Recovered/Resolved]
  - Premature rupture of membranes [Unknown]
  - Premature delivery [Unknown]
  - Exposure during pregnancy [Unknown]
